FAERS Safety Report 10353397 (Version 2)
Quarter: 2014Q3

REPORT INFORMATION
  Report Type: Report from Study
  Country: US (occurrence: US)
  Receive Date: 20140731
  Receipt Date: 20140731
  Transmission Date: 20150326
  Serious: Yes (Hospitalization)
  Sender: FDA-Public Use
  Company Number: US-BIOGENIDEC-193868

PATIENT
  Age: 46 Year
  Sex: Male

DRUGS (4)
  1. AVONEX [Suspect]
     Active Substance: INTERFERON BETA-1A
     Indication: MULTIPLE SCLEROSIS
     Route: 030
     Dates: start: 200308
  2. AVONEX [Suspect]
     Active Substance: INTERFERON BETA-1A
     Indication: MULTIPLE SCLEROSIS
     Route: 030
     Dates: start: 20030516, end: 200308
  3. AVONEX [Suspect]
     Active Substance: INTERFERON BETA-1A
     Indication: MULTIPLE SCLEROSIS
     Route: 030
     Dates: start: 20140717
  4. TYLENOL [Concomitant]
     Active Substance: ACETAMINOPHEN
     Indication: PROPHYLAXIS

REACTIONS (22)
  - Hip arthroplasty [Recovered/Resolved]
  - Cold sweat [Unknown]
  - Influenza like illness [Recovered/Resolved]
  - Device issue [Unknown]
  - Mobility decreased [Unknown]
  - Impaired healing [Unknown]
  - Procedural pain [Not Recovered/Not Resolved]
  - Chills [Not Recovered/Not Resolved]
  - Hypotension [Unknown]
  - Thrombosis [Recovered/Resolved]
  - Temperature regulation disorder [Unknown]
  - Arthritis [Recovered/Resolved]
  - Fall [Recovered/Resolved]
  - Limb injury [Unknown]
  - Skin ulcer [Unknown]
  - Wound [Not Recovered/Not Resolved]
  - Malaise [Unknown]
  - Amnesia [Unknown]
  - Intervertebral disc disorder [Not Recovered/Not Resolved]
  - Intervertebral disc protrusion [Unknown]
  - Cardiovascular disorder [Unknown]
  - Gait disturbance [Unknown]

NARRATIVE: CASE EVENT DATE: 2003
